FAERS Safety Report 16914171 (Version 1)
Quarter: 2019Q4

REPORT INFORMATION
  Report Type: Spontaneous
  Country: US (occurrence: US)
  Receive Date: 20191014
  Receipt Date: 20191014
  Transmission Date: 20200122
  Serious: Yes (Hospitalization)
  Sender: FDA-Public Use
  Company Number: US-PFIZER INC-2019438077

PATIENT
  Age: 36 Year
  Sex: Male

DRUGS (1)
  1. METHIMAZOLE. [Suspect]
     Active Substance: METHIMAZOLE
     Indication: BASEDOW^S DISEASE
     Dosage: UNK

REACTIONS (3)
  - Pleural effusion [Recovering/Resolving]
  - Pneumothorax [Recovering/Resolving]
  - Hypothyroidism [Recovered/Resolved]
